FAERS Safety Report 9136378 (Version 1)
Quarter: 2013Q1

REPORT INFORMATION
  Report Type: Spontaneous
  Country: US (occurrence: US)
  Receive Date: 20130219
  Receipt Date: 20130219
  Transmission Date: 20140127
  Serious: No
  Sender: FDA-Public Use
  Company Number: US-BRISTOL-MYERS SQUIBB COMPANY-16526766

PATIENT
  Age: 53 Year
  Sex: Female
  Weight: 132 kg

DRUGS (1)
  1. ORENCIA FOR INJ [Suspect]
     Indication: RHEUMATOID ARTHRITIS
     Dosage: 1 DF : ONE DOSE (3BAGS) AND 2 DAYS LATER,STARTED WITH SELF INJ HRS,LAST DOSE ON 22APR12
     Route: 058
     Dates: start: 20120105

REACTIONS (3)
  - Fatigue [Unknown]
  - Abscess [Unknown]
  - Candida infection [Unknown]
